FAERS Safety Report 9036963 (Version 1)
Quarter: 2013Q1

REPORT INFORMATION
  Report Type: Spontaneous
  Country: DK (occurrence: None)
  Receive Date: 20130115
  Receipt Date: 20130115
  Transmission Date: 20140127
  Serious: Yes (Hospitalization)
  Sender: FDA-Public Use
  Company Number: 2013MA000325

PATIENT
  Age: 75 Year
  Sex: Female

DRUGS (5)
  1. METFORMIN HYDROCHLORIDE EXTENDED-RELEASE TABLETS, 750 MG (PUREPAC) (METFORMIN HYDROCHLORIDE) [Suspect]
     Route: 048
     Dates: start: 20080101, end: 20120619
  2. NEBILOX [Concomitant]
  3. BLOPRESID [Concomitant]
  4. TAVOR [Concomitant]
  5. LANSOPRAZOLE [Concomitant]

REACTIONS (1)
  - Hypoglycaemic coma [None]
